FAERS Safety Report 6075162-3 (Version None)
Quarter: 2009Q1

REPORT INFORMATION
  Report Type: 
  Country: None (occurrence: None)
  Receive Date: 20090212
  Receipt Date: 20090130
  Transmission Date: 20090719
  Serious: Yes (Other)
  Sender: FDA-Public Use
  Company Number: US-ROCHE-607043

PATIENT
  Sex: Female
  Weight: 71.2 kg

DRUGS (2)
  1. PEGASYS [Suspect]
     Route: 058
     Dates: start: 20081001, end: 20090108
  2. COPEGUS [Suspect]
     Dosage: DOSAGE: 200 MG, 3 AM AND 2 PM = 600 AM AND 400 PM
     Route: 048
     Dates: start: 20081001, end: 20090108

REACTIONS (5)
  - ASTHENIA [None]
  - EYE HAEMORRHAGE [None]
  - HYPOTENSION [None]
  - LOSS OF CONSCIOUSNESS [None]
  - TREMOR [None]
